FAERS Safety Report 6087915-6 (Version None)
Quarter: 2009Q1

REPORT INFORMATION
  Report Type: 
  Country: None (occurrence: None)
  Receive Date: 20090219
  Receipt Date: 20090219
  Transmission Date: 20090719
  Serious: No
  Sender: FDA-Public Use
  Company Number: None

PATIENT
  Age: 61 Year
  Sex: Female
  Weight: 53.5244 kg

DRUGS (13)
  1. DONEPEZIL HCL [Suspect]
     Dosage: 10MG PO
     Route: 048
     Dates: start: 20080616, end: 20080723
  2. LAMICTAL [Concomitant]
  3. PIROXICAM [Concomitant]
  4. DETROL LA [Concomitant]
  5. AMBIEN [Concomitant]
  6. ACTONEL [Concomitant]
  7. BENZTROPINE [Concomitant]
  8. CALCIUM [Concomitant]
  9. ALPRAZOLAM EXTENDED-RELEASE [Concomitant]
  10. DEPAKOTE [Concomitant]
  11. FOSAMAX [Concomitant]
  12. PROLIXIN DECANOATE [Concomitant]
  13. PROLIXIN HCL [Concomitant]

REACTIONS (4)
  - CONDITION AGGRAVATED [None]
  - DELUSION [None]
  - INSOMNIA [None]
  - PSYCHOTIC DISORDER [None]
